FAERS Safety Report 4581975-7 (Version None)
Quarter: 2005Q1

REPORT INFORMATION
  Report Type: 
  Country: None (occurrence: None)
  Receive Date: 20050119
  Receipt Date: 20040524
  Transmission Date: 20050727
  Serious: Yes (Hospitalization)
  Sender: FDA-Public Use
  Company Number: US-JNJFOC-20040300945

PATIENT
  Age: 57 Year
  Sex: Female

DRUGS (6)
  1. DOXIL [Suspect]
     Indication: OVARIAN CANCER
     Dosage: 50 MG/M2, 1 IN 4 WEEK, INTRAVENOUS
     Route: 042
     Dates: start: 20031101, end: 20040206
  2. DOXIL [Suspect]
     Dosage: DOSE REDUCED TO 75% OF PREVIOUS DOSE
     Dates: start: 20040501
  3. PREVACID [Concomitant]
  4. ZOFRAN [Concomitant]
  5. DEMEROL [Concomitant]
  6. PARENTERAL NUTRITION (PARENTERAL) [Concomitant]

REACTIONS (3)
  - OVARIAN CANCER [None]
  - PALMAR-PLANTAR ERYTHRODYSAESTHESIA SYNDROME [None]
  - RASH MACULAR [None]
